FAERS Safety Report 9686662 (Version 2)
Quarter: 2014Q1

REPORT INFORMATION
  Report Type: Spontaneous
  Country: AU (occurrence: AU)
  Receive Date: 20131113
  Receipt Date: 20140128
  Transmission Date: 20141002
  Serious: Yes (Death, Other)
  Sender: FDA-Public Use
  Company Number: AU-ROCHE-1302254

PATIENT
  Age: 87 Year
  Sex: 0

DRUGS (2)
  1. ACTILYSE [Suspect]
     Indication: BASAL GANGLIA INFARCTION
     Route: 065
     Dates: start: 20110715
  2. ACTILYSE [Suspect]
     Indication: CEREBRAL INFARCTION

REACTIONS (2)
  - Death [Fatal]
  - Cerebral haemorrhage [Unknown]
